FAERS Safety Report 9980701 (Version 1)
Quarter: 2014Q1

REPORT INFORMATION
  Report Type: Spontaneous
  Country: FR (occurrence: FR)
  Receive Date: 20140307
  Receipt Date: 20140307
  Transmission Date: 20141002
  Serious: Yes (Hospitalization)
  Sender: FDA-Public Use
  Company Number: FR-ROCHE-1358844

PATIENT
  Sex: Female

DRUGS (4)
  1. ROACTEMRA [Suspect]
     Indication: RHEUMATOID ARTHRITIS
     Route: 042
     Dates: start: 20110929, end: 20130613
  2. SOLUPRED (FRANCE) [Concomitant]
     Indication: LUNG DISORDER
     Route: 065
     Dates: start: 2000
  3. SOLUPRED (FRANCE) [Concomitant]
     Route: 065
     Dates: start: 20130322
  4. AUGMENTIN [Concomitant]
     Indication: LUNG DISORDER
     Dosage: FOR 10 DAYS
     Route: 065
     Dates: start: 20130322

REACTIONS (1)
  - Amyotrophic lateral sclerosis [Not Recovered/Not Resolved]
